FAERS Safety Report 19094680 (Version 1)
Quarter: 2021Q2

REPORT INFORMATION
  Report Type: Spontaneous
  Country: GB (occurrence: GB)
  Receive Date: 20210406
  Receipt Date: 20210406
  Transmission Date: 20210717
  Serious: Yes (Life-Threatening, Hospitalization, Other)
  Sender: FDA-Public Use
  Company Number: GB-AXELLIA-003753

PATIENT
  Age: 8 Year
  Sex: Female

DRUGS (8)
  1. METRONIDAZOLE. [Concomitant]
     Active Substance: METRONIDAZOLE
     Indication: STREPTOCOCCAL INFECTION
     Dates: start: 2019, end: 2019
  2. MEROPENEM. [Concomitant]
     Active Substance: MEROPENEM
     Indication: STREPTOCOCCAL INFECTION
     Dates: start: 2019
  3. CEFTRIAXONE. [Suspect]
     Active Substance: CEFTRIAXONE
     Indication: PERITONITIS BACTERIAL
     Dates: start: 2019, end: 2019
  4. CEFTRIAXONE. [Suspect]
     Active Substance: CEFTRIAXONE
     Indication: STREPTOCOCCAL INFECTION
     Dates: start: 2019, end: 2019
  5. VANCOMYCIN [Suspect]
     Active Substance: VANCOMYCIN
     Indication: STREPTOCOCCAL INFECTION
     Dates: start: 2019
  6. MEROPENEM. [Concomitant]
     Active Substance: MEROPENEM
     Indication: PERITONITIS BACTERIAL
     Dates: start: 2019
  7. VANCOMYCIN [Suspect]
     Active Substance: VANCOMYCIN
     Indication: PERITONITIS BACTERIAL
     Dates: start: 2019
  8. METRONIDAZOLE. [Concomitant]
     Active Substance: METRONIDAZOLE
     Indication: PERITONITIS BACTERIAL
     Dates: start: 2019, end: 2019

REACTIONS (6)
  - Lactic acidosis [Recovering/Resolving]
  - Hepatic function abnormal [Recovering/Resolving]
  - Renal impairment [Recovering/Resolving]
  - Drug reaction with eosinophilia and systemic symptoms [Recovering/Resolving]
  - Myocarditis [Recovering/Resolving]
  - Multiple organ dysfunction syndrome [Recovering/Resolving]

NARRATIVE: CASE EVENT DATE: 2019
